FAERS Safety Report 10235372 (Version 2)
Quarter: 2014Q3

REPORT INFORMATION
  Report Type: Spontaneous
  Country: US (occurrence: US)
  Receive Date: 20140613
  Receipt Date: 20140704
  Transmission Date: 20150326
  Serious: No
  Sender: FDA-Public Use
  Company Number: US-PFIZER INC-2014159847

PATIENT
  Age: 57 Year
  Sex: Female
  Weight: 176.9 kg

DRUGS (23)
  1. ACETAZOLAMIDE. [Suspect]
     Active Substance: ACETAZOLAMIDE
     Indication: DIURETIC THERAPY
     Dosage: 125 MG, 1X/DAY
  2. GLIPIZIDE XR [Concomitant]
     Indication: DIABETES MELLITUS
     Dosage: 5 MG, 1X/DAY
  3. COZAAR [Concomitant]
     Active Substance: LOSARTAN POTASSIUM
     Indication: CARDIAC DISORDER
     Dosage: 100 MG, 1X/DAY
  4. FERROUS SULFATE [Concomitant]
     Active Substance: FERROUS SULFATE\FERROUS SULFATE, DRIED
     Dosage: UNK, 1X/DAY
  5. LOMOTIL [Concomitant]
     Active Substance: ATROPINE SULFATE\DIPHENOXYLATE HYDROCHLORIDE
     Indication: DIARRHOEA
     Dosage: TWO TABLETS FOUR TIMES A DAY, AS NEEDED
  6. NITROGLYCERIN. [Concomitant]
     Active Substance: NITROGLYCERIN
     Dosage: 0.2 MG, PER HOUR
  7. SPIRONOLACTONE. [Suspect]
     Active Substance: SPIRONOLACTONE
     Indication: DIURETIC THERAPY
     Dosage: 25 MG, 2X/DAY
  8. THYROXINE [Concomitant]
     Active Substance: LEVOTHYROXINE
     Indication: HYPOTHYROIDISM
     Dosage: 150 UG, 1X/DAY
  9. LANTUS SOLOSTAR [Concomitant]
     Active Substance: INSULIN GLARGINE
     Indication: DIABETES MELLITUS
     Dosage: UNK
  10. METOLAZONE. [Suspect]
     Active Substance: METOLAZONE
     Indication: DIURETIC THERAPY
     Dosage: 10 MG, 2X/DAY
  11. BACLOFEN. [Concomitant]
     Active Substance: BACLOFEN
     Indication: MUSCLE RELAXANT THERAPY
     Dosage: 20 MG, ONCE A DAY AS NEEDED
  12. CORTISONE [Concomitant]
     Active Substance: CORTISONE\HYDROCORTISONE
     Indication: ARTHRITIS
     Dosage: UNK
  13. VITAMIN D3 [Concomitant]
     Active Substance: CHOLECALCIFEROL
     Dosage: 1000 IU, 1X/DAY
  14. CLONAZEPAM. [Concomitant]
     Active Substance: CLONAZEPAM
     Indication: ANXIETY
     Dosage: 2 MG, 3X/DAY
  15. METOPROLOL [Concomitant]
     Active Substance: METOPROLOL
     Dosage: 100 MG, 1X/DAY
  16. POTASSIUM CHLORIDE. [Concomitant]
     Active Substance: POTASSIUM CHLORIDE
     Dosage: 10 MEQ, 2X/DAY
  17. LASIX [Suspect]
     Active Substance: FUROSEMIDE
     Indication: DIURETIC THERAPY
     Dosage: 80 MG, 2X/DAY
  18. RANITIDINE [Concomitant]
     Active Substance: RANITIDINE\RANITIDINE HYDROCHLORIDE
     Dosage: 150 MG, ONCE A DAY OR TWICE A DAY AS NEEDED
  19. ACETAMINOPHEN W/HYDROCODONE BITARTRATE [Concomitant]
     Active Substance: ACETAMINOPHEN\HYDROCODONE BITARTRATE
     Indication: PAIN
     Dosage: 2 DF (8/325MG), EVERY 4-6 HOURS DEPENDING ON HER PAIN
  20. WARFARIN [Concomitant]
     Active Substance: WARFARIN
     Dosage: 5 MG, 1X/DAY AT NIGHT
  21. NIFEDIPINE. [Concomitant]
     Active Substance: NIFEDIPINE
     Indication: CARDIAC DISORDER
     Dosage: 60 MG, 1X/DAY
  22. METOPROLOL [Concomitant]
     Active Substance: METOPROLOL
     Dosage: 25 MG, 2X/DAY
  23. AMLODIPINE [Concomitant]
     Active Substance: AMLODIPINE BESYLATE
     Dosage: 5 MG, 1X/DAY

REACTIONS (3)
  - Pollakiuria [Unknown]
  - Incontinence [Unknown]
  - Muscle spasms [Unknown]
